FAERS Safety Report 9532007 (Version 1)
Quarter: 2013Q2

REPORT INFORMATION
  Report Type: Spontaneous
  Country: FR (occurrence: None)
  Receive Date: 20130403
  Receipt Date: 20130403
  Transmission Date: 20140414
  Serious: Yes (Other)
  Sender: FDA-Public Use
  Company Number: US-2012-10501

PATIENT
  Age: 1 Year
  Sex: Male

DRUGS (4)
  1. BUSULFEX [Suspect]
     Indication: NEUROBLASTOMA
     Route: 042
  2. MELPHALAN [Concomitant]
  3. CLONAZEPAM [Concomitant]
  4. URSODIOL (URSODEOXYCHOLIC ACID) [Concomitant]

REACTIONS (6)
  - Mucosal inflammation [None]
  - Venoocclusive liver disease [None]
  - Diarrhoea [None]
  - Nausea [None]
  - Hepatotoxicity [None]
  - Staphylococcal bacteraemia [None]
